FAERS Safety Report 11687541 (Version 1)
Quarter: 2015Q4

REPORT INFORMATION
  Report Type: Spontaneous
  Country: CH (occurrence: CH)
  Receive Date: 20151030
  Receipt Date: 20151030
  Transmission Date: 20160304
  Serious: Yes (Hospitalization)
  Sender: FDA-Public Use
  Company Number: CH-BAYER-2015-449191

PATIENT
  Age: 86 Year
  Sex: Female

DRUGS (11)
  1. NIFEDIPIN [Concomitant]
     Active Substance: NIFEDIPINE
  2. MARCOUMAR [Interacting]
     Active Substance: PHENPROCOUMON
     Indication: ATRIAL FIBRILLATION
     Route: 048
     Dates: start: 2015, end: 20150310
  3. DIPYRONE [Concomitant]
     Active Substance: DIPYRONE
  4. ASPIRIN CARDIO [Interacting]
     Active Substance: ASPIRIN
     Indication: CARDIAC DISORDER
     Dosage: 100 MG, QD
     Route: 048
     Dates: start: 2015, end: 20150310
  5. MEFENAMIC-ACID [Interacting]
     Active Substance: MEFENAMIC ACID
     Indication: ARTHRALGIA
     Route: 048
     Dates: start: 20150306, end: 20150310
  6. COMILORID [Concomitant]
     Active Substance: HYDROCHLOROTHIAZIDE
  7. PARACETAMOL [Concomitant]
     Active Substance: ACETAMINOPHEN
  8. COSAAR [Concomitant]
     Active Substance: LOSARTAN POTASSIUM
  9. TOREM [Suspect]
     Active Substance: TORSEMIDE
  10. BELOC [Concomitant]
     Active Substance: METOPROLOL TARTRATE
  11. NOVALGIN [Concomitant]
     Active Substance: METAMIZOLE SODIUM

REACTIONS (4)
  - Haemorrhagic anaemia [Recovering/Resolving]
  - International normalised ratio increased [Recovered/Resolved]
  - Gastric ulcer [Unknown]
  - Gastric ulcer haemorrhage [Recovered/Resolved]

NARRATIVE: CASE EVENT DATE: 201503
